FAERS Safety Report 4685629-8 (Version None)
Quarter: 2005Q2

REPORT INFORMATION
  Report Type: 
  Country: None (occurrence: None)
  Receive Date: 20050608
  Receipt Date: 20041208
  Transmission Date: 20051028
  Serious: Yes (Hospitalization)
  Sender: FDA-Public Use
  Company Number: GB-MERCK-0412GBR00086

PATIENT
  Age: 57 Year
  Sex: Female

DRUGS (3)
  1. VIOXX [Suspect]
     Indication: ARTHRITIS
     Route: 048
     Dates: start: 20011101, end: 20041001
  2. ORLISTAT [Concomitant]
     Indication: WEIGHT CONTROL
     Route: 065
  3. [THERAPY UNSPECIFIED] [Concomitant]
     Route: 065

REACTIONS (2)
  - BUNDLE BRANCH BLOCK [None]
  - DYSPNOEA [None]
